FAERS Safety Report 24532673 (Version 2)
Quarter: 2024Q4

REPORT INFORMATION
  Report Type: Spontaneous
  Country: US (occurrence: US)
  Receive Date: 20241022
  Receipt Date: 20241104
  Transmission Date: 20250114
  Serious: No
  Sender: LUPIN
  Company Number: US-LUPIN PHARMACEUTICALS INC.-2024-10045

PATIENT

DRUGS (2)
  1. TIOTROPIUM BROMIDE [Suspect]
     Active Substance: TIOTROPIUM BROMIDE
     Indication: Chronic obstructive pulmonary disease
     Dosage: 1 DOSAGE FORM, QD
     Dates: start: 20240924
  2. VITAMINS [Concomitant]
     Active Substance: VITAMINS
     Indication: Product used for unknown indication
     Dosage: UNK
     Route: 065

REACTIONS (6)
  - Drug dose omission by device [Unknown]
  - Device defective [Unknown]
  - Device malfunction [Unknown]
  - Device mechanical issue [Unknown]
  - Product expiration date issue [Unknown]
  - No adverse event [Unknown]
